FAERS Safety Report 8817491 (Version 1)
Quarter: 2012Q4

REPORT INFORMATION
  Report Type: 
  Country: NO (occurrence: NO)
  Receive Date: 20121004
  Receipt Date: 20121004
  Transmission Date: 20130627
  Serious: Yes (Hospitalization, Other)
  Sender: FDA-Public Use
  Company Number: NO-BAXTER-2012BAX018746

PATIENT
  Sex: Male

DRUGS (6)
  1. SENDOXAN 1000 MG PULVER TIL INJEKSJONSV?SKE, OPPL?SNING [Suspect]
     Indication: WEGENER^S GRANULOMATOSIS
     Route: 065
  2. RITUXIMAB [Suspect]
     Indication: WEGENER^S GRANULOMATOSIS
     Dosage: MONO THERAPY (1G X2)
     Route: 065
     Dates: start: 201004
  3. RITUXIMAB [Suspect]
     Route: 065
     Dates: start: 20070620
  4. RITUXIMAB [Suspect]
     Route: 065
  5. PREDNISOLONE [Suspect]
     Indication: WEGENER^S GRANULOMATOSIS
     Route: 065
     Dates: start: 20100420
  6. AZATHIOPRINE [Concomitant]
     Indication: WEGENERS GRANULOMATOSIS
     Route: 065
     Dates: start: 200706

REACTIONS (2)
  - Hypogammaglobulinaemia [Recovering/Resolving]
  - Infection [Unknown]
